FAERS Safety Report 20089645 (Version 2)
Quarter: 2023Q1

REPORT INFORMATION
  Report Type: Spontaneous
  Country: PT (occurrence: PT)
  Receive Date: 20211119
  Receipt Date: 20230320
  Transmission Date: 20230418
  Serious: Yes (Hospitalization, Other)
  Sender: FDA-Public Use
  Company Number: None

PATIENT
  Age: 20 Year
  Sex: Male

DRUGS (2)
  1. IBUPROFEN [Suspect]
     Active Substance: IBUPROFEN
     Indication: Toothache
     Dosage: 600 MILLIGRAM, EVERY 8 HOURS (EXCEEDED 600 MG EVERY 8 HOURS DAILY IN A WEEK)
     Route: 048
  2. ACETAMINOPHEN [Concomitant]
     Active Substance: ACETAMINOPHEN
     Indication: Toothache
     Dosage: UNK
     Route: 048

REACTIONS (7)
  - Renal cortical necrosis [None]
  - Anuria [None]
  - Chronic kidney disease [None]
  - Anaemia [Unknown]
  - Nephropathy toxic [None]
  - Acute kidney injury [None]
  - Toxicity to various agents [None]
